FAERS Safety Report 5343443-4 (Version None)
Quarter: 2007Q2

REPORT INFORMATION
  Report Type: 
  Country: None (occurrence: None)
  Receive Date: 20070531
  Receipt Date: 20070516
  Transmission Date: 20071010
  Serious: Yes (Life-Threatening, Other)
  Sender: FDA-Public Use
  Company Number: VER_00060_2007

PATIENT
  Sex: Female

DRUGS (11)
  1. EPINEPHRINE [Suspect]
     Indication: ANAPHYLACTIC REACTION
     Dosage: 0,3 MG PRN
     Dates: start: 20070401
  2. EPINEPHRINE [Suspect]
     Indication: LATEX ALLERGY
     Dosage: 0,3 MG PRN
     Dates: start: 20070401
  3. NEXIUM [Concomitant]
  4. REACTION ALLERGY AND SINUS [Concomitant]
  5. DIMETAPP NIGHTTIME COLD [Concomitant]
  6. CLARITIN NASAL SPRAY [Concomitant]
  7. GABAPENTIN [Concomitant]
  8. NAPROXEN [Concomitant]
  9. AMITRIPTYLINE HCL [Concomitant]
  10. SLEEPING PIL (UNSPECIFIED) [Concomitant]
  11. CHLORTRIPOLON [Concomitant]

REACTIONS (3)
  - DEVICE FAILURE [None]
  - INCORRECT DOSE ADMINISTERED [None]
  - PHARMACEUTICAL PRODUCT COMPLAINT [None]
